FAERS Safety Report 9814881 (Version 3)
Quarter: 2014Q1

REPORT INFORMATION
  Report Type: Report from Study
  Country: KR (occurrence: KR)
  Receive Date: 20140113
  Receipt Date: 20140214
  Transmission Date: 20141002
  Serious: Yes (Hospitalization)
  Sender: FDA-Public Use
  Company Number: KR-GLAXOSMITHKLINE-B0938955B

PATIENT
  Age: 78 Year
  Sex: Male
  Weight: 57 kg

DRUGS (5)
  1. PAZOPANIB [Suspect]
     Indication: RENAL CELL CARCINOMA
     Dosage: 400MG PER DAY
     Route: 048
     Dates: start: 20130515
  2. CARDURA XL [Concomitant]
     Dosage: 4UNIT PER DAY
     Route: 048
     Dates: start: 19990101
  3. NORVASC [Concomitant]
     Indication: HYPERTENSION
     Dosage: 10UNIT PER DAY
     Route: 048
     Dates: start: 20130817
  4. ISOSORBIDE DINITRATE [Concomitant]
     Indication: HYPERTENSION
     Dosage: 10UNIT THREE TIMES PER DAY
     Route: 048
     Dates: start: 20131101
  5. DILATREND [Concomitant]
     Indication: HYPERTENSION
     Dosage: 6.25UNIT PER DAY
     Route: 048
     Dates: start: 20131101

REACTIONS (1)
  - Azotaemia [Not Recovered/Not Resolved]
